FAERS Safety Report 13674016 (Version 3)
Quarter: 2017Q3

REPORT INFORMATION
  Report Type: Report from Study
  Country: US (occurrence: US)
  Receive Date: 20170621
  Receipt Date: 20170823
  Transmission Date: 20171127
  Serious: Yes (Disabling, Other)
  Sender: FDA-Public Use
  Company Number: US-REGENERON PHARMACEUTICALS, INC.-2017-11881

PATIENT

DRUGS (5)
  1. EYLEA [Suspect]
     Active Substance: AFLIBERCEPT
     Dosage: 2 MG, RIGHT EYE, RANGED FROM EVERY 4 TO 6 WEEKS, MONTH TO AS NEEDED
     Route: 031
     Dates: start: 20170112, end: 20170112
  2. MULTIVITAMIN [Concomitant]
     Active Substance: VITAMINS
     Indication: PRODUCT USED FOR UNKNOWN INDICATION
  3. EYLEA [Suspect]
     Active Substance: AFLIBERCEPT
     Indication: NEOVASCULAR AGE-RELATED MACULAR DEGENERATION
     Dosage: 2 MG, RIGHT EYE, RANGED FROM EVERY 4 TO 6 WEEKS, MONTH TO AS NEEDED
     Route: 031
     Dates: start: 20141009
  4. PRESERVISION AREDS 2 [Concomitant]
     Active Substance: MINERALS\VITAMINS
     Indication: PRODUCT USED FOR UNKNOWN INDICATION
     Dosage: UNK
  5. EYLEA [Suspect]
     Active Substance: AFLIBERCEPT
     Dosage: 2 MG, RIGHT EYE, RANGED FROM EVERY 4 TO 6 WEEKS, MONTH TO AS NEEDED, LAST DOSE
     Route: 031
     Dates: start: 20170321, end: 20170321

REACTIONS (6)
  - Visual impairment [Not Recovered/Not Resolved]
  - Vitreous floaters [Not Recovered/Not Resolved]
  - Photopsia [Recovered/Resolved]
  - Endophthalmitis [Recovered/Resolved]
  - Blindness transient [Recovered/Resolved]
  - Product expiration date issue [Unknown]

NARRATIVE: CASE EVENT DATE: 201701
